FAERS Safety Report 24538463 (Version 1)
Quarter: 2024Q4

REPORT INFORMATION
  Report Type: Spontaneous
  Country: US (occurrence: None)
  Receive Date: 20241023
  Receipt Date: 20241023
  Transmission Date: 20250115
  Serious: No
  Sender: BANNER
  Company Number: US-PTA-005815

PATIENT
  Sex: Female

DRUGS (2)
  1. NAPROXEN [Suspect]
     Active Substance: NAPROXEN
     Indication: Product used for unknown indication
     Route: 048
  2. LORATADINE [Concomitant]
     Active Substance: LORATADINE

REACTIONS (1)
  - Rash [Unknown]
